FAERS Safety Report 4634576-6 (Version None)
Quarter: 2005Q2

REPORT INFORMATION
  Report Type: 
  Country: None (occurrence: None)
  Receive Date: 20050413
  Receipt Date: 20050405
  Transmission Date: 20051028
  Serious: Yes (Disabling)
  Sender: FDA-Public Use
  Company Number: GB-MERCK-0504GBR00037

PATIENT
  Sex: Female

DRUGS (1)
  1. HYDROCORTONE [Suspect]
     Route: 048

REACTIONS (8)
  - CHRONIC FATIGUE SYNDROME [None]
  - DIABETES INSIPIDUS [None]
  - HIATUS HERNIA [None]
  - IMMUNE SYSTEM DISORDER [None]
  - INTERVERTEBRAL DISC PROTRUSION [None]
  - OSTEOPOROSIS [None]
  - PRESCRIBED OVERDOSE [None]
  - SPINAL OSTEOARTHRITIS [None]
